FAERS Safety Report 18598879 (Version 1)
Quarter: 2020Q4

REPORT INFORMATION
  Report Type: Other
  Country: NL (occurrence: NL)
  Receive Date: 20201210
  Receipt Date: 20201210
  Transmission Date: 20210114
  Serious: Yes (Hospitalization, Other)
  Sender: FDA-Public Use
  Company Number: NL-ROCHE-2726220

PATIENT

DRUGS (1)
  1. CAPECITABINE. [Suspect]
     Active Substance: CAPECITABINE
     Indication: RECTAL CANCER
     Route: 065

REACTIONS (7)
  - Enteritis [Unknown]
  - Diarrhoea [Unknown]
  - Dermatitis [Unknown]
  - Proctitis [Unknown]
  - Fatigue [Unknown]
  - Cystitis noninfective [Unknown]
  - Acute kidney injury [Unknown]
